FAERS Safety Report 5662335-4 (Version None)
Quarter: 2008Q1

REPORT INFORMATION
  Report Type: 
  Country: None (occurrence: None)
  Receive Date: 20080312
  Receipt Date: 20080229
  Transmission Date: 20080703
  Serious: Yes (Other)
  Sender: FDA-Public Use
  Company Number: US-PFIZER INC-2008020513

PATIENT
  Age: 16 Year
  Sex: Female

DRUGS (1)
  1. LYRICA [Suspect]

REACTIONS (3)
  - BACK PAIN [None]
  - INSOMNIA [None]
  - PANIC ATTACK [None]
